FAERS Safety Report 17929715 (Version 2)
Quarter: 2020Q2

REPORT INFORMATION
  Report Type: Spontaneous
  Country: US (occurrence: US)
  Receive Date: 20200623
  Receipt Date: 20200629
  Transmission Date: 20200714
  Serious: No
  Sender: FDA-Public Use
  Company Number: US-PFIZER INC-2020239924

PATIENT
  Age: 43 Year
  Sex: Male
  Weight: 104.33 kg

DRUGS (4)
  1. LYRICA [Suspect]
     Active Substance: PREGABALIN
     Indication: SENSORY DISTURBANCE
  2. LYRICA [Suspect]
     Active Substance: PREGABALIN
     Indication: NERVOUS SYSTEM DISORDER
     Dosage: 150 MG, 2X/DAY (150 MG CAPSULE BY MOUTH TWICE A DAY)
     Route: 048
     Dates: start: 202003
  3. LYRICA [Suspect]
     Active Substance: PREGABALIN
     Indication: ARM AMPUTATION
  4. LYRICA [Suspect]
     Active Substance: PREGABALIN
     Indication: BACK DISORDER

REACTIONS (11)
  - Withdrawal syndrome [Unknown]
  - Fatigue [Unknown]
  - Pain [Unknown]
  - Insomnia [Recovering/Resolving]
  - Agitation [Not Recovered/Not Resolved]
  - Headache [Recovering/Resolving]
  - Feeling abnormal [Recovering/Resolving]
  - Feeling cold [Recovering/Resolving]
  - Weight increased [Unknown]
  - Cold sweat [Recovering/Resolving]
  - Gastric disorder [Recovering/Resolving]

NARRATIVE: CASE EVENT DATE: 202006
